FAERS Safety Report 14186923 (Version 1)
Quarter: 2017Q4

REPORT INFORMATION
  Report Type: Spontaneous
  Country: US (occurrence: US)
  Receive Date: 20171113
  Receipt Date: 20171113
  Transmission Date: 20180321
  Serious: Yes (Other)
  Sender: FDA-Public Use
  Company Number: None

PATIENT
  Age: 64 Year
  Sex: Female
  Weight: 76.5 kg

DRUGS (6)
  1. MAGNESIUM/ZINC [Concomitant]
     Active Substance: MAGNESIUM OXIDE\ZINC
  2. CIPRO [Suspect]
     Active Substance: CIPROFLOXACIN HYDROCHLORIDE
     Indication: NEPHROLITHIASIS
     Dosage: ?          QUANTITY:20 TABLET(S);?
     Route: 048
  3. CALCIUM [Concomitant]
     Active Substance: CALCIUM
  4. ANITHISTIMINES [Concomitant]
  5. VITAMIN D [Concomitant]
     Active Substance: CHOLECALCIFEROL
  6. CIPRO [Suspect]
     Active Substance: CIPROFLOXACIN HYDROCHLORIDE
     Indication: URINARY TRACT INFECTION
     Dosage: ?          QUANTITY:20 TABLET(S);?
     Route: 048

REACTIONS (3)
  - Fatigue [None]
  - Gait disturbance [None]
  - Tendon pain [None]

NARRATIVE: CASE EVENT DATE: 20171112
